FAERS Safety Report 7914977 (Version 4)
Quarter: 2012Q4

REPORT INFORMATION
  Report Type: 
  Country: JP (occurrence: JP)
  Receive Date: 20110426
  Receipt Date: 20121218
  Transmission Date: 20130627
  Serious: Yes (Death)
  Sender: FDA-Public Use
  Company Number: JP-ROCHE-767872

PATIENT
  Age: 77 Year
  Sex: Female
  Weight: 57 kg

DRUGS (15)
  1. BEVACIZUMAB [Suspect]
     Indication: COLON CANCER METASTATIC
     Route: 041
     Dates: start: 20091218, end: 20101116
  2. BEVACIZUMAB [Suspect]
     Route: 041
     Dates: start: 20101210, end: 20110304
  3. OXALIPLATIN [Suspect]
     Indication: COLON CANCER METASTATIC
     Route: 041
     Dates: start: 20091218, end: 20100917
  4. FLUOROURACIL [Suspect]
     Indication: COLON CANCER METASTATIC
     Route: 040
     Dates: start: 20091218, end: 20101116
  5. FLUOROURACIL [Suspect]
     Route: 040
     Dates: start: 20091218, end: 201011
  6. FLUOROURACIL [Suspect]
     Route: 040
     Dates: start: 20101210, end: 20110304
  7. FLUOROURACIL [Suspect]
     Route: 040
     Dates: start: 20101210, end: 201103
  8. CALCIUM FOLINATE [Suspect]
     Indication: COLON CANCER METASTATIC
     Route: 041
     Dates: start: 20091218, end: 20101116
  9. CALCIUM FOLINATE [Suspect]
     Route: 041
     Dates: start: 20101210, end: 20110304
  10. IRINOTECAN [Suspect]
     Indication: COLON CANCER METASTATIC
     Route: 041
     Dates: start: 20101210, end: 20110304
  11. OXYCONTIN [Concomitant]
     Dosage: DOSE FORM:SUSTAINED-RELEASE TABLET.
     Route: 048
  12. ORGOTEIN [Concomitant]
     Dosage: DOSE FORM: POWDERED MEDICINE
     Route: 048
  13. LOXOPROFEN SODIUM [Concomitant]
     Route: 065
  14. MAGMITT [Concomitant]
     Route: 048
  15. METOCLOPRAMIDE [Concomitant]
     Route: 048

REACTIONS (3)
  - Interstitial lung disease [Fatal]
  - Neuropathy peripheral [Not Recovered/Not Resolved]
  - Stomatitis [Recovered/Resolved]
